FAERS Safety Report 4524826-9 (Version None)
Quarter: 2004Q4

REPORT INFORMATION
  Report Type: 
  Country: None (occurrence: None)
  Receive Date: 20041210
  Receipt Date: 20041210
  Transmission Date: 20050328
  Serious: No
  Sender: FDA-Public Use
  Company Number: None

PATIENT
  Age: 1 Day
  Sex: Female
  Weight: 0.5 kg

DRUGS (1)
  1. CHLORHEXIDINE GLUCONATE [Suspect]
     Indication: ANTIBACTERIAL PROPHYLAXIS
     Dosage: SEVERAL MLS

REACTIONS (2)
  - APPLICATION SITE EXCORIATION [None]
  - THERMAL BURN [None]
